FAERS Safety Report 8874402 (Version 2)
Quarter: 2012Q4

REPORT INFORMATION
  Report Type: 
  Country: GB (occurrence: GB)
  Receive Date: 20121031
  Receipt Date: 20121107
  Transmission Date: 20130627
  Serious: Yes (Hospitalization)
  Sender: FDA-Public Use
  Company Number: GB-009507513-1210GBR013053

PATIENT
  Age: 79 Year
  Sex: Male

DRUGS (1)
  1. ONCOTICE [Suspect]
     Indication: BLADDER CANCER STAGE 0, WITH CANCER IN SITU
     Dosage: UNK
     Route: 065

REACTIONS (5)
  - Interstitial lung disease [Unknown]
  - Lung infiltration [Recovering/Resolving]
  - Pyrexia [Unknown]
  - Chills [Unknown]
  - Malaise [Unknown]
